FAERS Safety Report 7347250-2 (Version None)
Quarter: 2011Q1

REPORT INFORMATION
  Report Type: 
  Country: None (occurrence: None)
  Receive Date: 20110311
  Receipt Date: 20110307
  Transmission Date: 20110831
  Serious: No
  Sender: FDA-Public Use
  Company Number: US-PFIZER INC-2011049829

PATIENT
  Sex: Female
  Weight: 60.771 kg

DRUGS (1)
  1. ALPRAZOLAM [Suspect]
     Indication: PANIC DISORDER
     Dosage: 0.25MG IN THE MORNING, 0.25MG IN THE AFTERNOON AND 0.5MG AT NIGHT
     Route: 048
     Dates: start: 20080101

REACTIONS (1)
  - DRUG INEFFECTIVE [None]
